FAERS Safety Report 19583876 (Version 7)
Quarter: 2022Q1

REPORT INFORMATION
  Report Type: Report from Study
  Country: US (occurrence: US)
  Receive Date: 20210720
  Receipt Date: 20220226
  Transmission Date: 20220423
  Serious: Yes (Hospitalization, Other)
  Sender: FDA-Public Use
  Company Number: NVSC2021US154296

PATIENT
  Age: 70 Year
  Sex: Male

DRUGS (4)
  1. ENTRESTO [Suspect]
     Active Substance: SACUBITRIL\VALSARTAN
     Indication: Cardiac failure
     Dosage: 50 MG, BID (24.26MG)
     Route: 048
     Dates: start: 20210227
  2. ENTRESTO [Suspect]
     Active Substance: SACUBITRIL\VALSARTAN
     Dosage: 100 MG (49.51 MG ONE TAB IN AM AND 2 TABS IN PM)
     Route: 048
  3. ENTRESTO [Suspect]
     Active Substance: SACUBITRIL\VALSARTAN
     Dosage: 1 DOSAGE FORM, BID (97/103 MG ONE HALF TABLET IN AM AND ONE)
     Route: 048
     Dates: start: 20211207
  4. COREG [Suspect]
     Active Substance: CARVEDILOL
     Indication: Product used for unknown indication
     Dosage: UNK
     Route: 065

REACTIONS (16)
  - Atrioventricular block [Recovered/Resolved]
  - Myocardial infarction [Recovered/Resolved]
  - Basal cell carcinoma [Recovered/Resolved]
  - Heart rate decreased [Recovered/Resolved]
  - Weight decreased [Recovering/Resolving]
  - Back pain [Recovering/Resolving]
  - Hypertension [Unknown]
  - Dysstasia [Recovered/Resolved]
  - Muscle atrophy [Recovering/Resolving]
  - Gait inability [Recovered/Resolved]
  - Blood pressure decreased [Recovering/Resolving]
  - Dehydration [Unknown]
  - Concomitant disease aggravated [Unknown]
  - Asthenia [Recovered/Resolved]
  - Glycosylated haemoglobin increased [Unknown]
  - Wrong technique in product usage process [Unknown]

NARRATIVE: CASE EVENT DATE: 20210316
